FAERS Safety Report 9114755 (Version 1)
Quarter: 2013Q1

REPORT INFORMATION
  Report Type: Spontaneous
  Country: US (occurrence: None)
  Receive Date: 20130220
  Receipt Date: 20130220
  Transmission Date: 20140127
  Serious: No
  Sender: FDA-Public Use
  Company Number: None

PATIENT
  Age: 74 Year
  Sex: Male
  Weight: 93.5 kg

DRUGS (1)
  1. TESTOSTERONE [Suspect]
     Dosage: MG   AM   TOP
     Route: 061
     Dates: start: 20121214, end: 20130107

REACTIONS (2)
  - Rash pruritic [None]
  - Rash erythematous [None]
